FAERS Safety Report 18932095 (Version 1)
Quarter: 2021Q1

REPORT INFORMATION
  Report Type: Spontaneous
  Country: US (occurrence: US)
  Receive Date: 20210223
  Receipt Date: 20210223
  Transmission Date: 20210420
  Serious: No
  Sender: FDA-Public Use
  Company Number: US-ROCHE-2721243

PATIENT
  Age: 18 Year

DRUGS (1)
  1. EVRYSDI [Suspect]
     Active Substance: RISDIPLAM
     Indication: SPINAL MUSCULAR ATROPHY
     Dosage: ONGOING: NO
     Route: 065

REACTIONS (3)
  - Fatigue [Unknown]
  - Nausea [Unknown]
  - Asthenia [Unknown]
